FAERS Safety Report 10209499 (Version 3)
Quarter: 2014Q4

REPORT INFORMATION
  Report Type: Report from Study
  Country: JP (occurrence: JP)
  Receive Date: 20140601
  Receipt Date: 20141123
  Transmission Date: 20150528
  Serious: Yes (Death)
  Sender: FDA-Public Use
  Company Number: JP-BRISTOL-MYERS SQUIBB COMPANY-20867313

PATIENT
  Age: 81 Year
  Sex: Male
  Weight: 64.7 kg

DRUGS (1)
  1. ELIQUIS [Suspect]
     Active Substance: APIXABAN
     Dosage: TABLET 2.5MG
     Route: 048

REACTIONS (1)
  - Interstitial lung disease [Fatal]
